FAERS Safety Report 5132173-X (Version None)
Quarter: 2006Q4

REPORT INFORMATION
  Report Type: 
  Country: None (occurrence: None)
  Receive Date: 20061017
  Receipt Date: 20060928
  Transmission Date: 20070319
  Serious: Yes (Hospitalization)
  Sender: FDA-Public Use
  Company Number: US200609007459

PATIENT
  Age: 44 Year
  Sex: Female

DRUGS (4)
  1. CYMBALTA [Suspect]
     Indication: DEPRESSION
     Dosage: 60 MG,
     Dates: start: 20060101
  2. PROZAC [Suspect]
     Indication: DEPRESSION
     Dosage: 40 MG,
     Dates: start: 19890101, end: 20040101
  3. INSULIN (INSULIN) [Concomitant]
  4. LAMICTAL [Concomitant]

REACTIONS (5)
  - DRUG INEFFECTIVE [None]
  - DYSPHAGIA [None]
  - FOREIGN BODY TRAUMA [None]
  - GASTRIC BYPASS [None]
  - OESOPHAGEAL PAIN [None]
